FAERS Safety Report 25184311 (Version 2)
Quarter: 2025Q2

REPORT INFORMATION
  Report Type: Spontaneous
  Country: CN (occurrence: CN)
  Receive Date: 20250410
  Receipt Date: 20250421
  Transmission Date: 20250716
  Serious: Yes (Other)
  Sender: MERCK SHARP & DOHME LLC
  Company Number: CN-009507513-2274265

PATIENT
  Age: 82 Year
  Sex: Female

DRUGS (3)
  1. ERTAPENEM [Suspect]
     Active Substance: ERTAPENEM
     Indication: Pneumonia bacterial
  2. LEVOFLOXACIN [Concomitant]
     Active Substance: LEVOFLOXACIN
  3. LOXOPROFEN [Concomitant]
     Active Substance: LOXOPROFEN

REACTIONS (3)
  - Epilepsy [Recovering/Resolving]
  - Disorganised speech [Recovering/Resolving]
  - Insomnia [Recovered/Resolved]
